FAERS Safety Report 16669064 (Version 1)
Quarter: 2019Q3

REPORT INFORMATION
  Report Type: Spontaneous
  Country: US (occurrence: US)
  Receive Date: 20190805
  Receipt Date: 20190805
  Transmission Date: 20191004
  Serious: Yes (Hospitalization)
  Sender: FDA-Public Use
  Company Number: None

PATIENT
  Age: 68 Year
  Sex: Female
  Weight: 72.99 kg

DRUGS (22)
  1. SYMBICORT [Concomitant]
     Active Substance: BUDESONIDE\FORMOTEROL FUMARATE DIHYDRATE
  2. DIAZEPAM. [Concomitant]
     Active Substance: DIAZEPAM
  3. MIRTAZAPINE. [Concomitant]
     Active Substance: MIRTAZAPINE
  4. OTEZLA [Concomitant]
     Active Substance: APREMILAST
  5. LEVOTHYROXINE. [Concomitant]
     Active Substance: LEVOTHYROXINE
  6. FAMCICLOVIR. [Concomitant]
     Active Substance: FAMCICLOVIR
  7. FLUTICASONE. [Concomitant]
     Active Substance: FLUTICASONE
  8. VITAMIN D [Concomitant]
     Active Substance: VITAMIN D NOS
  9. GLYCOLAX [Concomitant]
     Active Substance: POLYETHYLENE GLYCOL 3350
  10. WARFARIN [Concomitant]
     Active Substance: WARFARIN
  11. PREDNISONE. [Concomitant]
     Active Substance: PREDNISONE
  12. IPRATROPIUM-ALBUTEROL [Concomitant]
     Active Substance: ALBUTEROL\IPRATROPIUM
  13. IBRANCE [Suspect]
     Active Substance: PALBOCICLIB
     Indication: BREAST CANCER FEMALE
     Route: 048
     Dates: start: 20180824
  14. NORCO [Concomitant]
     Active Substance: ACETAMINOPHEN\HYDROCODONE BITARTRATE
  15. MAGNESIUM OXIDE. [Concomitant]
     Active Substance: MAGNESIUM OXIDE
  16. PATANOL [Concomitant]
     Active Substance: OLOPATADINE HYDROCHLORIDE
  17. VENTOLIN HFA [Concomitant]
     Active Substance: ALBUTEROL SULFATE
  18. FENTANYL. [Concomitant]
     Active Substance: FENTANYL
  19. PANTOPRAZOLE [Concomitant]
     Active Substance: PANTOPRAZOLE
  20. ANASTROZOLE. [Concomitant]
     Active Substance: ANASTROZOLE
  21. GABAPENTIN. [Concomitant]
     Active Substance: GABAPENTIN
  22. PACERONE [Concomitant]
     Active Substance: AMIODARONE HYDROCHLORIDE

REACTIONS (2)
  - Fracture [None]
  - Back disorder [None]

NARRATIVE: CASE EVENT DATE: 20190805
